FAERS Safety Report 5288205-1 (Version None)
Quarter: 2007Q1

REPORT INFORMATION
  Report Type: 
  Country: None (occurrence: None)
  Receive Date: 20070330
  Receipt Date: 20070315
  Transmission Date: 20070707
  Serious: Yes (Hospitalization)
  Sender: FDA-Public Use
  Company Number: 238932

PATIENT
  Age: 63 Year
  Sex: Female
  Weight: 92.5 kg

DRUGS (1)
  1. AVASTIN [Suspect]
     Indication: COLORECTAL CANCER
     Dosage: 440 MG, Q2W, INTRAVENOUS
     Route: 042
     Dates: start: 20060630

REACTIONS (2)
  - PYREXIA [None]
  - SUBILEUS [None]
